FAERS Safety Report 20623350 (Version 1)
Quarter: 2022Q1

REPORT INFORMATION
  Report Type: Spontaneous
  Country: US (occurrence: US)
  Receive Date: 20220322
  Receipt Date: 20220322
  Transmission Date: 20220424
  Serious: No
  Sender: FDA-Public Use
  Company Number: US-TEVA-2022-US-2010738

PATIENT
  Age: 1 Year
  Sex: Male

DRUGS (1)
  1. CEPHALEXIN [Suspect]
     Active Substance: CEPHALEXIN
     Indication: Paronychia
     Dosage: 250/5 MG/ML
     Route: 048
     Dates: start: 20220215, end: 20220217

REACTIONS (3)
  - Product storage error [Unknown]
  - Adverse event [Unknown]
  - Vomiting [Unknown]

NARRATIVE: CASE EVENT DATE: 20220201
